FAERS Safety Report 4551508-X (Version None)
Quarter: 2005Q1

REPORT INFORMATION
  Report Type: 
  Country: None (occurrence: None)
  Receive Date: 20050110
  Receipt Date: 20041210
  Transmission Date: 20050727
  Serious: Yes (Other)
  Sender: FDA-Public Use
  Company Number: 2004-12-0874

PATIENT
  Sex: Male

DRUGS (4)
  1. CORICIDIN HBP COUGH + COLD (CHLORPHENIRAMINE MAL/DEX TABLETS [Suspect]
     Indication: INTENTIONAL MISUSE
     Dosage: ORAL
     Route: 048
  2. COCAINE [Suspect]
     Indication: INTENTIONAL MISUSE
  3. MARIJUANA [Concomitant]
  4. ALCOHOL [Concomitant]

REACTIONS (4)
  - ALCOHOL USE [None]
  - CONVULSION [None]
  - HALLUCINATION [None]
  - POLYSUBSTANCE ABUSE [None]
